FAERS Safety Report 10798236 (Version 1)
Quarter: 2015Q1

REPORT INFORMATION
  Report Type: Spontaneous
  Country: US (occurrence: US)
  Receive Date: 20150216
  Receipt Date: 20150216
  Transmission Date: 20150721
  Serious: No
  Sender: FDA-Public Use
  Company Number: US-PFIZER INC-2015060071

PATIENT
  Age: 42 Year
  Sex: Female

DRUGS (4)
  1. SKELAXIN [Suspect]
     Active Substance: METAXALONE
     Dosage: UNK
  2. MOTRIN [Suspect]
     Active Substance: IBUPROFEN
     Dosage: UNK
  3. CYMBALTA [Suspect]
     Active Substance: DULOXETINE HYDROCHLORIDE
     Dosage: UNK
  4. CELEBREX [Suspect]
     Active Substance: CELECOXIB
     Dosage: UNK

REACTIONS (1)
  - Drug hypersensitivity [Unknown]
